FAERS Safety Report 4510531-1 (Version None)
Quarter: 2004Q4

REPORT INFORMATION
  Report Type: 
  Country: None (occurrence: None)
  Receive Date: 20041122
  Receipt Date: 20041111
  Transmission Date: 20050328
  Serious: Yes (Other)
  Sender: FDA-Public Use
  Company Number: 2004-11-0717

PATIENT
  Age: 50 Year
  Sex: Female

DRUGS (4)
  1. PEG-INTERFERON ALFA-2B INJECTABLE [Suspect]
     Indication: HEPATITIS C
     Dosage: 25 MCG/WK
     Dates: start: 20020901, end: 20030101
  2. RAPAMYCIN [Concomitant]
  3. TACROLIMUS FK-506 [Concomitant]
  4. PREDNISONE [Concomitant]

REACTIONS (5)
  - ANTIBODY TEST POSITIVE [None]
  - APLASIA PURE RED CELL [None]
  - HEPATIC ENZYME INCREASED [None]
  - LIVER TRANSPLANT REJECTION [None]
  - PANCYTOPENIA [None]
